FAERS Safety Report 5505869-5 (Version None)
Quarter: 2007Q4

REPORT INFORMATION
  Report Type: 
  Country: None (occurrence: None)
  Receive Date: 20071102
  Receipt Date: 20071023
  Transmission Date: 20080405
  Serious: Yes (Other)
  Sender: FDA-Public Use
  Company Number: PL-MERCK-0710POL00025

PATIENT
  Age: 69 Year
  Sex: Female
  Weight: 58 kg

DRUGS (4)
  1. SINGULAIR [Suspect]
     Indication: RHINITIS
     Route: 048
     Dates: start: 20070205, end: 20070301
  2. BUDESONIDE [Concomitant]
     Indication: ASTHMA
     Dates: start: 20000101
  3. FORMOTEROL FUMARATE [Concomitant]
     Indication: ASTHMA
     Dates: start: 20000101
  4. ATORVASTATIN CALCIUM [Concomitant]
     Indication: HYPERLIPIDAEMIA
     Route: 048
     Dates: start: 20060601

REACTIONS (2)
  - EXTRAVASATION [None]
  - RASH PAPULAR [None]
